FAERS Safety Report 12552622 (Version 1)
Quarter: 2016Q3

REPORT INFORMATION
  Report Type: Spontaneous
  Country: US (occurrence: US)
  Receive Date: 20160713
  Receipt Date: 20160713
  Transmission Date: 20161109
  Serious: Yes (Hospitalization)
  Sender: FDA-Public Use
  Company Number: US-SA-2016SA127375

PATIENT
  Age: 50 Year
  Sex: Male

DRUGS (6)
  1. CLOPIDOGREL [Concomitant]
     Active Substance: CLOPIDOGREL BISULFATE
  2. LISINOPRIL. [Concomitant]
     Active Substance: LISINOPRIL
  3. RANEXA [Concomitant]
     Active Substance: RANOLAZINE
  4. ATENOLOL. [Concomitant]
     Active Substance: ATENOLOL
  5. PRALUENT [Suspect]
     Active Substance: ALIROCUMAB
     Indication: HYPERCHYLOMICRONAEMIA
     Route: 058
     Dates: start: 20160513
  6. ALIROCUMAB PREFILLED PEN [Concomitant]
     Active Substance: ALIROCUMAB
     Dates: start: 20160513

REACTIONS (4)
  - Chromaturia [Unknown]
  - Dehydration [Unknown]
  - Hyperhidrosis [Unknown]
  - Thirst [Unknown]
